FAERS Safety Report 9877023 (Version 1)
Quarter: 2014Q1

REPORT INFORMATION
  Report Type: Spontaneous
  Country: US (occurrence: US)
  Receive Date: 20140206
  Receipt Date: 20140206
  Transmission Date: 20141002
  Serious: No
  Sender: FDA-Public Use
  Company Number: US-PFIZER INC-2014030937

PATIENT
  Sex: Female

DRUGS (6)
  1. CELEBREX [Suspect]
     Indication: OSTEONECROSIS
     Dosage: UNK
  2. CELEBREX [Suspect]
     Indication: OSTEOARTHRITIS
  3. CELEBREX [Suspect]
     Indication: BONE DISORDER
  4. GABAPENTIN [Suspect]
     Indication: OSTEONECROSIS
     Dosage: UNK
  5. GABAPENTIN [Suspect]
     Indication: OSTEOARTHRITIS
  6. GABAPENTIN [Suspect]
     Indication: BONE DISORDER

REACTIONS (1)
  - Drug ineffective for unapproved indication [Unknown]
